FAERS Safety Report 15455105 (Version 1)
Quarter: 2018Q4

REPORT INFORMATION
  Report Type: Spontaneous
  Country: DE (occurrence: DE)
  Receive Date: 20181002
  Receipt Date: 20181002
  Transmission Date: 20190204
  Serious: Yes (Hospitalization)
  Sender: FDA-Public Use
  Company Number: DE-TEVA-2018-DE-957984

PATIENT
  Age: 72 Year
  Sex: Female
  Weight: 100 kg

DRUGS (1)
  1. CINQAERO 10 MG/ML KONZENTRAT ZUR HERSTELLUNG EINER INFUSIONSLOESUNG [Suspect]
     Active Substance: RESLIZUMAB
     Dosage: 3 AMPOULS (DOSE ACCORDING TO WEIGHT),
     Dates: start: 20171114

REACTIONS (3)
  - Vomiting [Recovering/Resolving]
  - Dizziness [Recovering/Resolving]
  - Headache [Recovering/Resolving]

NARRATIVE: CASE EVENT DATE: 201808
